FAERS Safety Report 6431637-6 (Version None)
Quarter: 2009Q4

REPORT INFORMATION
  Report Type: 
  Country: None (occurrence: None)
  Receive Date: 20091103
  Receipt Date: 20091019
  Transmission Date: 20100525
  Serious: No
  Sender: FDA-Public Use
  Company Number: 004558

PATIENT
  Age: 61 Year
  Sex: Male
  Weight: 49.7 kg

DRUGS (11)
  1. PLETAL [Suspect]
     Indication: CEREBRAL INFARCTION
     Dosage: 100 MG, BID, ORAL
     Route: 048
     Dates: start: 20060825, end: 20080828
  2. PLETAL [Suspect]
     Indication: CEREBRAL INFARCTION
     Dosage: 100 MG, BID, ORAL
     Route: 048
     Dates: start: 20080907, end: 20080918
  3. NIFLEC (SODIUM_POTASSIUM COMBINED DRUG) POWDER FOR ORAL SOLUTION [Concomitant]
  4. LAXOBERON (SODIUM PICOSULFATE) [Concomitant]
  5. BUSCOPAN (SCOPOLAMINE BUTYLBROMIDE) INJECTION [Concomitant]
  6. HORIZON (DIAZEPAM) INJECTION [Concomitant]
  7. XYLOCAINE [Concomitant]
  8. GASCON (DIMETICONE) [Concomitant]
  9. INDIGOCARMINE (INDIGO CARMINE) INJECTION [Concomitant]
  10. DISTILLED WATER (WATER FOR INJECTION) [Concomitant]
  11. PHYSIOLOGICAL SALINE SOLUTIONS (PHYSIOLOGICAL SALINE SOLUTIONS) [Concomitant]

REACTIONS (1)
  - LARGE INTESTINE CARCINOMA [None]
